FAERS Safety Report 24644459 (Version 3)
Quarter: 2025Q1

REPORT INFORMATION
  Report Type: Spontaneous
  Country: IL (occurrence: IL)
  Receive Date: 20241121
  Receipt Date: 20250327
  Transmission Date: 20250409
  Serious: Yes (Death, Hospitalization)
  Sender: RIGEL PHARMACEUTICALS
  Company Number: IL-RIGEL PHARMACEUTICALS, INC.-20241100078

PATIENT
  Age: 44 Year
  Sex: Female

DRUGS (1)
  1. TAVALISSE [Suspect]
     Active Substance: FOSTAMATINIB
     Indication: Autoimmune haemolytic anaemia
     Route: 065
     Dates: start: 202412, end: 202502

REACTIONS (4)
  - Cardiac disorder [Fatal]
  - Chest discomfort [Unknown]
  - Troponin increased [Unknown]
  - Off label use [Unknown]

NARRATIVE: CASE EVENT DATE: 20241201
